FAERS Safety Report 15369640 (Version 2)
Quarter: 2018Q4

REPORT INFORMATION
  Report Type: Spontaneous
  Country: US (occurrence: US)
  Receive Date: 20180911
  Receipt Date: 20181018
  Transmission Date: 20190204
  Serious: Yes (Death, Other)
  Sender: FDA-Public Use
  Company Number: US-ASTELLAS-2018US039413

PATIENT
  Age: 73 Year
  Sex: Male

DRUGS (1)
  1. XTANDI [Suspect]
     Active Substance: ENZALUTAMIDE
     Indication: PROSTATE CANCER
     Route: 048
     Dates: start: 2016, end: 2018

REACTIONS (6)
  - Ocular hypertension [Unknown]
  - Eye disorder [Unknown]
  - Red blood cell count abnormal [Fatal]
  - Eye haemorrhage [Unknown]
  - Malignant neoplasm progression [Fatal]
  - Blindness [Unknown]

NARRATIVE: CASE EVENT DATE: 2017
